FAERS Safety Report 12639656 (Version 1)
Quarter: 2016Q3

REPORT INFORMATION
  Report Type: Spontaneous
  Country: US (occurrence: None)
  Receive Date: 20160809
  Receipt Date: 20160809
  Transmission Date: 20161109
  Serious: Yes (Other)
  Sender: FDA-Public Use
  Company Number: None

PATIENT
  Age: 64 Year
  Sex: Female
  Weight: 94.8 kg

DRUGS (5)
  1. FISH OIL [Concomitant]
     Active Substance: FISH OIL
  2. VALSARTAN. [Suspect]
     Active Substance: VALSARTAN
     Indication: BLOOD PRESSURE MEASUREMENT
     Route: 048
     Dates: start: 20160523, end: 20160713
  3. VITAMIN C [Concomitant]
     Active Substance: ASCORBIC ACID
  4. 0NE-A-DAY WOMENS VITAMIN [Concomitant]
  5. AMLODIPINE [Concomitant]
     Active Substance: AMLODIPINE BESYLATE

REACTIONS (9)
  - Product quality issue [None]
  - Blood pressure increased [None]
  - Pruritus [None]
  - Hyperhidrosis [None]
  - Epistaxis [None]
  - Malaise [None]
  - Cold sweat [None]
  - Photophobia [None]
  - Hyperacusis [None]

NARRATIVE: CASE EVENT DATE: 20160523
